FAERS Safety Report 10498299 (Version 2)
Quarter: 2015Q2

REPORT INFORMATION
  Report Type: Report from Study
  Country: US (occurrence: US)
  Receive Date: 20141006
  Receipt Date: 20150414
  Transmission Date: 20150821
  Serious: Yes (Hospitalization)
  Sender: FDA-Public Use
  Company Number: US-GILEAD-2014-0117342

PATIENT
  Age: 76 Year
  Sex: Female

DRUGS (13)
  1. CALTRATE 600+D3 [Concomitant]
  2. OMEPRAZOLE. [Concomitant]
     Active Substance: OMEPRAZOLE
  3. SPIRONOLACTONE. [Concomitant]
     Active Substance: SPIRONOLACTONE
  4. BIOTIN [Concomitant]
     Active Substance: BIOTIN
  5. COUMADIN [Concomitant]
     Active Substance: WARFARIN SODIUM
  6. CENTRUM                            /07499601/ [Concomitant]
  7. CHONDROITIN W/GLUCOSAMINE          /02118501/ [Concomitant]
  8. PROAIR HFA [Concomitant]
     Active Substance: ALBUTEROL SULFATE
  9. AMBRISENTAN [Suspect]
     Active Substance: AMBRISENTAN
     Indication: PULMONARY ARTERIAL HYPERTENSION
     Dosage: 10 MG, QD
     Route: 065
     Dates: start: 20140418
  10. ESTRIOL [Concomitant]
     Active Substance: ESTRIOL
  11. METOPROLOL [Concomitant]
     Active Substance: METOPROLOL
  12. LIPITOR [Concomitant]
     Active Substance: ATORVASTATIN CALCIUM
  13. FUROSEMIDE. [Concomitant]
     Active Substance: FUROSEMIDE

REACTIONS (1)
  - Chest pain [Unknown]
